FAERS Safety Report 17875924 (Version 3)
Quarter: 2020Q3

REPORT INFORMATION
  Report Type: Spontaneous
  Country: BR (occurrence: BR)
  Receive Date: 20200609
  Receipt Date: 20200707
  Transmission Date: 20201103
  Serious: Yes (Death, Other)
  Sender: FDA-Public Use
  Company Number: BR-B.I. PHARMACEUTICALS,INC./RIDGEFIELD-2020-BI-027304

PATIENT
  Age: 47 Year
  Sex: Male

DRUGS (10)
  1. ATROVENT [Suspect]
     Active Substance: IPRATROPIUM BROMIDE
     Indication: TACHYPNOEA
     Route: 065
     Dates: start: 20200130, end: 20200205
  2. HALOPERIDOL. [Concomitant]
     Active Substance: HALOPERIDOL
     Indication: PRODUCT USED FOR UNKNOWN INDICATION
     Dosage: STRENGHT: 5MG/ML;AMPOULE
     Route: 030
  3. OMEPRAZOL [OMEPRAZOLE] [Concomitant]
     Active Substance: OMEPRAZOLE
     Indication: PRODUCT USED FOR UNKNOWN INDICATION
     Dosage: STRENGHT: 20MG/10ML
     Route: 065
  4. CARVEDILOL. [Concomitant]
     Active Substance: CARVEDILOL
     Indication: PRODUCT USED FOR UNKNOWN INDICATION
     Dosage: STRENGHT: 6.25MG
     Route: 065
  5. CLEXANE [Concomitant]
     Active Substance: ENOXAPARIN SODIUM
     Indication: PRODUCT USED FOR UNKNOWN INDICATION
     Route: 065
  6. LOSARTANA POTASSICA [Concomitant]
     Active Substance: LOSARTAN
     Indication: PRODUCT USED FOR UNKNOWN INDICATION
     Dosage: STRENGHT: 50MG
     Route: 065
  7. BEROTEC [Suspect]
     Active Substance: FENOTEROL HYDROBROMIDE
     Indication: TACHYPNOEA
     Route: 055
     Dates: start: 20200130, end: 20200205
  8. BEROTEC [Suspect]
     Active Substance: FENOTEROL HYDROBROMIDE
     Indication: BRONCHOSPASM
  9. ATROVENT [Suspect]
     Active Substance: IPRATROPIUM BROMIDE
     Indication: BRONCHOSPASM
  10. AMIODARONA [AMIODARONE] [Concomitant]
     Active Substance: AMIODARONE
     Indication: PRODUCT USED FOR UNKNOWN INDICATION
     Dosage: STRENGHT: 200MG/2ML
     Route: 065

REACTIONS (3)
  - Shock [Fatal]
  - Cardio-respiratory arrest [Unknown]
  - Illness [Unknown]

NARRATIVE: CASE EVENT DATE: 20200205
